FAERS Safety Report 11135547 (Version 1)
Quarter: 2015Q2

REPORT INFORMATION
  Report Type: Spontaneous
  Country: US (occurrence: None)
  Receive Date: 20150522
  Receipt Date: 20150522
  Transmission Date: 20150821
  Serious: Yes (Death, Hospitalization)
  Sender: FDA-Public Use
  Company Number: None

PATIENT
  Age: 66 Year
  Sex: Male
  Weight: 84.9 kg

DRUGS (3)
  1. BEVACIZUMAB [Suspect]
     Active Substance: BEVACIZUMAB
     Dates: end: 20141210
  2. TAXOL [Suspect]
     Active Substance: PACLITAXEL
     Dates: end: 20141210
  3. CARBOPLATIN. [Suspect]
     Active Substance: CARBOPLATIN
     Dates: end: 20141210

REACTIONS (10)
  - Dehydration [None]
  - Orthostatic hypotension [None]
  - Mental status changes [None]
  - Septic shock [None]
  - General physical health deterioration [None]
  - Hypoxia [None]
  - Lethargy [None]
  - Asthenia [None]
  - Respiratory failure [None]
  - Lactic acidosis [None]

NARRATIVE: CASE EVENT DATE: 20141229
